FAERS Safety Report 5693200-4 (Version None)
Quarter: 2008Q2

REPORT INFORMATION
  Report Type: 
  Country: None (occurrence: None)
  Receive Date: 20080403
  Receipt Date: 20080327
  Transmission Date: 20081010
  Serious: Yes (Other)
  Sender: FDA-Public Use
  Company Number: CH-BRISTOL-MYERS SQUIBB COMPANY-14043194

PATIENT
  Sex: Male

DRUGS (6)
  1. ERBITUX [Suspect]
     Route: 042
  2. ATENOLOL [Suspect]
  3. GLUCOPHAGE [Suspect]
  4. IRBESARTAN [Suspect]
  5. XELODA [Suspect]
     Indication: METASTASES TO LIVER
     Dates: start: 20060101
  6. OXALIPLATIN [Suspect]
     Indication: METASTASES TO LIVER
     Route: 042
     Dates: start: 20060101

REACTIONS (1)
  - ERECTILE DYSFUNCTION [None]
